FAERS Safety Report 19990339 (Version 1)
Quarter: 2021Q4

REPORT INFORMATION
  Report Type: Spontaneous
  Country: US (occurrence: US)
  Receive Date: 20211022
  Receipt Date: 20211022
  Transmission Date: 20220304
  Serious: No
  Sender: FDA-Public Use
  Company Number: None

PATIENT
  Age: 73 Year
  Sex: Female
  Weight: 99 kg

DRUGS (1)
  1. PRIMIDONE [Suspect]
     Active Substance: PRIMIDONE
     Indication: Tremor
     Dosage: ?          QUANTITY:1 TABLET(S);
     Route: 048
     Dates: start: 20211021, end: 20211022

REACTIONS (5)
  - Loss of control of legs [None]
  - Feeling abnormal [None]
  - Vision blurred [None]
  - Nausea [None]
  - Somnambulism [None]

NARRATIVE: CASE EVENT DATE: 20211022
